FAERS Safety Report 7577952-4 (Version None)
Quarter: 2011Q2

REPORT INFORMATION
  Report Type: 
  Country: None (occurrence: None)
  Receive Date: 20110628
  Receipt Date: 20110621
  Transmission Date: 20111010
  Serious: Yes (Death, Hospitalization)
  Sender: FDA-Public Use
  Company Number: US-CELGENEUS-163-21880-11062883

PATIENT
  Age: 66 Year
  Sex: Female

DRUGS (7)
  1. METOPROLOL TARTRATE [Concomitant]
     Route: 065
  2. FUROSEMIDE [Concomitant]
     Route: 065
  3. ALBUTEROL SULFATE AUTOHALER [Concomitant]
     Route: 065
  4. BONIVA [Concomitant]
     Route: 065
  5. REVLIMID [Suspect]
     Indication: AMYLOIDOSIS
     Dosage: 25 MILLIGRAM
     Route: 048
     Dates: start: 20100701
  6. REVLIMID [Suspect]
  7. ASMANEX TWISTHALER [Concomitant]
     Route: 065

REACTIONS (2)
  - CLOSTRIDIAL INFECTION [None]
  - DEATH [None]
